FAERS Safety Report 6134220-5 (Version None)
Quarter: 2009Q1

REPORT INFORMATION
  Report Type: 
  Country: None (occurrence: None)
  Receive Date: 20090326
  Receipt Date: 20090316
  Transmission Date: 20090719
  Serious: Yes (Death, Other)
  Sender: FDA-Public Use
  Company Number: US-PFIZER INC-2008160317

PATIENT
  Sex: Female
  Weight: 45 kg

DRUGS (1)
  1. CHANTIX [Suspect]
     Indication: SMOKING CESSATION THERAPY
     Dosage: UNK
     Route: 048
     Dates: start: 20071101, end: 20080401

REACTIONS (2)
  - LUNG NEOPLASM MALIGNANT [None]
  - PNEUMONIA [None]
